FAERS Safety Report 6086121-9 (Version None)
Quarter: 2009Q1

REPORT INFORMATION
  Report Type: 
  Country: None (occurrence: None)
  Receive Date: 20090217
  Receipt Date: 20090217
  Transmission Date: 20090719
  Serious: No
  Sender: FDA-Public Use
  Company Number: None

PATIENT
  Age: 62 Year
  Sex: Female
  Weight: 80.7403 kg

DRUGS (1)
  1. MOBIC [Suspect]
     Indication: TENDON RUPTURE
     Dosage: 1 EVERY 4 HOURS PO
     Route: 048
     Dates: start: 20081010, end: 20081017

REACTIONS (3)
  - ANURIA [None]
  - HYPERTONIC BLADDER [None]
  - INJECTION SITE INFLAMMATION [None]
